FAERS Safety Report 4639860-8 (Version None)
Quarter: 2005Q2

REPORT INFORMATION
  Report Type: 
  Country: None (occurrence: None)
  Receive Date: 20050418
  Receipt Date: 20050408
  Transmission Date: 20051028
  Serious: Yes (Other)
  Sender: FDA-Public Use
  Company Number: 033-0981-M0000139

PATIENT
  Age: 48 Year
  Sex: Male
  Weight: 83.2 kg

DRUGS (2)
  1. ATORVASTATIN CALCIUM [Suspect]
     Indication: CEREBROVASCULAR ACCIDENT PROPHYLAXIS
     Dosage: (1 IN 1 D), ORAL
     Route: 048
     Dates: start: 19990727, end: 20000320
  2. ASASANTIN            (ACETYLSALICYLIC ACID, DIPYRIDAMOLE) [Concomitant]

REACTIONS (4)
  - ALANINE AMINOTRANSFERASE INCREASED [None]
  - ASPARTATE AMINOTRANSFERASE INCREASED [None]
  - HYPERTRIGLYCERIDAEMIA [None]
  - MYALGIA [None]
